FAERS Safety Report 22931878 (Version 3)
Quarter: 2023Q4

REPORT INFORMATION
  Report Type: Spontaneous
  Country: US (occurrence: US)
  Receive Date: 20230911
  Receipt Date: 20231227
  Transmission Date: 20240109
  Serious: Yes (Other)
  Sender: FDA-Public Use
  Company Number: US-BEH-2023162968

PATIENT
  Age: 22 Year
  Sex: Male
  Weight: 78.5 kg

DRUGS (1)
  1. HEMGENIX [Suspect]
     Active Substance: ETRANACOGENE DEZAPARVOVEC
     Dosage: UNK, SINGLE (ONE TIME INFUSION)
     Route: 042
     Dates: start: 20230630, end: 20230630

REACTIONS (1)
  - Alanine aminotransferase increased [Recovered/Resolved]

NARRATIVE: CASE EVENT DATE: 20230817
